FAERS Safety Report 16780023 (Version 1)
Quarter: 2019Q3

REPORT INFORMATION
  Report Type: Spontaneous
  Country: US (occurrence: US)
  Receive Date: 20190906
  Receipt Date: 20190906
  Transmission Date: 20191005
  Serious: Yes (Hospitalization)
  Sender: FDA-Public Use
  Company Number: US-VERTEX PHARMACEUTICALS-2019-007463

PATIENT
  Age: 7 Year
  Sex: Female

DRUGS (1)
  1. KALYDECO [Suspect]
     Active Substance: IVACAFTOR
     Indication: CYSTIC FIBROSIS
     Dosage: 150 MG, BID
     Route: 048
     Dates: start: 20190716

REACTIONS (9)
  - Headache [Unknown]
  - Arthralgia [Unknown]
  - Musculoskeletal pain [Unknown]
  - Increased bronchial secretion [Not Recovered/Not Resolved]
  - Chest pain [Unknown]
  - Lung infection [Not Recovered/Not Resolved]
  - Urinary tract infection [Unknown]
  - Chest discomfort [Unknown]
  - Abdominal pain [Unknown]

NARRATIVE: CASE EVENT DATE: 2019
